FAERS Safety Report 9753903 (Version 2)
Quarter: 2013Q4

REPORT INFORMATION
  Report Type: Spontaneous
  Country: US (occurrence: US)
  Receive Date: 20131213
  Receipt Date: 20131213
  Transmission Date: 20140711
  Serious: No
  Sender: FDA-Public Use
  Company Number: US-GILEAD-2010-0027467

PATIENT
  Age: 57 Year
  Sex: Male
  Weight: 99.79 kg

DRUGS (16)
  1. LETAIRIS [Suspect]
     Indication: PULMONARY ARTERIAL HYPERTENSION
     Route: 048
     Dates: start: 20090521, end: 20100126
  2. REVATIO [Concomitant]
  3. DILTIAZEM [Concomitant]
  4. ALLOPURINOL [Concomitant]
  5. DIGOXIN [Concomitant]
  6. CELLCEPT [Concomitant]
  7. PREDNISONE [Concomitant]
  8. FLOMAX [Concomitant]
  9. BACTRIM DS [Concomitant]
  10. CIPRO [Concomitant]
  11. ZYVOX [Concomitant]
  12. MEGACE ES [Concomitant]
  13. REGLAN [Concomitant]
  14. NEXIUM [Concomitant]
  15. NYSTATIN [Concomitant]
  16. MAG OXIDE [Concomitant]

REACTIONS (1)
  - Liver function test abnormal [Unknown]
